FAERS Safety Report 11598145 (Version 2)
Quarter: 2016Q2

REPORT INFORMATION
  Report Type: Spontaneous
  Country: US (occurrence: US)
  Receive Date: 20151006
  Receipt Date: 20160405
  Transmission Date: 20160815
  Serious: Yes (Hospitalization, Disabling)
  Sender: FDA-Public Use
  Company Number: US-ROCHE-1613382

PATIENT
  Age: 61 Year
  Sex: Male
  Weight: 80.81 kg

DRUGS (1)
  1. ERIVEDGE [Suspect]
     Active Substance: VISMODEGIB
     Indication: NEOPLASM MALIGNANT
     Route: 048
     Dates: start: 20150427, end: 20150724

REACTIONS (6)
  - Alopecia [Recovered/Resolved]
  - Ageusia [Recovered/Resolved]
  - Abdominal pain upper [Unknown]
  - Muscle spasms [Unknown]
  - Muscle spasms [Recovered/Resolved]
  - Fatigue [Recovered/Resolved]

NARRATIVE: CASE EVENT DATE: 201506
